FAERS Safety Report 7780765-1 (Version None)
Quarter: 2011Q3

REPORT INFORMATION
  Report Type: 
  Country: None (occurrence: None)
  Receive Date: 20110927
  Receipt Date: 20110921
  Transmission Date: 20111222
  Serious: Yes (Hospitalization)
  Sender: FDA-Public Use
  Company Number: FR-SANOFI-AVENTIS-2011SA061627

PATIENT
  Age: 86 Year
  Sex: Female

DRUGS (4)
  1. COLCHICINE [Suspect]
     Route: 048
     Dates: start: 20110804, end: 20110808
  2. ALLOPURINOL [Suspect]
     Route: 048
     Dates: start: 20110804, end: 20110808
  3. PREVISCAN [Suspect]
     Route: 048
     Dates: end: 20110808
  4. LASIX [Suspect]
     Route: 042
     Dates: start: 20110723, end: 20110726

REACTIONS (5)
  - NAUSEA [None]
  - DIARRHOEA [None]
  - DECREASED APPETITE [None]
  - DEHYDRATION [None]
  - TACHYCARDIA [None]
